FAERS Safety Report 5409523-X (Version None)
Quarter: 2007Q3

REPORT INFORMATION
  Report Type: 
  Country: None (occurrence: None)
  Receive Date: 20070808
  Receipt Date: 20070808
  Transmission Date: 20080115
  Serious: Yes (Hospitalization)
  Sender: FDA-Public Use
  Company Number: None

PATIENT
  Age: 80 Year
  Sex: Male

DRUGS (2)
  1. GABAPENTIN [Suspect]
     Indication: NEUROPATHY
     Dosage: 300MG BID PO
     Route: 048
     Dates: start: 20020304, end: 20070801
  2. LISINOPRIL [Suspect]
     Dosage: 2.5MG EVERY DAY PO
     Route: 048
     Dates: start: 20060816, end: 20070801

REACTIONS (2)
  - DIZZINESS [None]
  - RENAL FAILURE ACUTE [None]
